FAERS Safety Report 4981934-6 (Version None)
Quarter: 2006Q2

REPORT INFORMATION
  Report Type: 
  Country: None (occurrence: None)
  Receive Date: 20060424
  Receipt Date: 20060424
  Transmission Date: 20061013
  Serious: Yes (Life-Threatening, Hospitalization)
  Sender: FDA-Public Use
  Company Number: None

PATIENT
  Age: 73 Year
  Sex: Male
  Weight: 31.2982 kg

DRUGS (1)
  1. ERBITUX [Suspect]
     Indication: PANCREATIC CARCINOMA
     Dosage: 740 MG LOADING DOSE IV DRIP
     Route: 041
     Dates: start: 20060419, end: 20060419

REACTIONS (9)
  - ABDOMINAL PAIN [None]
  - ANAPHYLACTIC REACTION [None]
  - ANXIETY [None]
  - COLD SWEAT [None]
  - DIZZINESS [None]
  - HYPERSENSITIVITY [None]
  - INFUSION RELATED REACTION [None]
  - LIVEDO RETICULARIS [None]
  - OXYGEN SATURATION DECREASED [None]
